FAERS Safety Report 5445726-6 (Version None)
Quarter: 2007Q3

REPORT INFORMATION
  Report Type: 
  Country: None (occurrence: None)
  Receive Date: 20070904
  Receipt Date: 20070731
  Transmission Date: 20080115
  Serious: Yes (Other)
  Sender: FDA-Public Use
  Company Number: 2007-162340-NL

PATIENT

DRUGS (1)
  1. REMERON [Suspect]

REACTIONS (1)
  - POLYSEROSITIS [None]
